FAERS Safety Report 14881908 (Version 1)
Quarter: 2018Q2

REPORT INFORMATION
  Report Type: Spontaneous
  Country: US (occurrence: US)
  Receive Date: 20180425
  Receipt Date: 20180425
  Transmission Date: 20180711
  Serious: Yes (Other)
  Sender: FDA-Public Use
  Company Number: None

PATIENT
  Age: 48 Year
  Sex: Female
  Weight: 67.5 kg

DRUGS (1)
  1. NEXPLANON [Suspect]
     Active Substance: ETONOGESTREL
     Indication: CONTRACEPTION
     Dosage: ?          QUANTITY:1 INJECTION(S);OTHER FREQUENCY:ONCE/3 YEARS;?
     Route: 058

REACTIONS (6)
  - Complication of device removal [None]
  - Pain [None]
  - Embedded device [None]
  - Paraesthesia [None]
  - Nerve injury [None]
  - Pain in extremity [None]

NARRATIVE: CASE EVENT DATE: 20180423
